FAERS Safety Report 9156678 (Version 1)
Quarter: 2013Q1

REPORT INFORMATION
  Report Type: Spontaneous
  Country: US (occurrence: None)
  Receive Date: 20130307
  Receipt Date: 20130307
  Transmission Date: 20140127
  Serious: No
  Sender: FDA-Public Use
  Company Number: None

PATIENT
  Age: 66 Year
  Sex: Male

DRUGS (1)
  1. IOHEXOL [Suspect]
     Indication: UROGRAM
     Dates: start: 20130227, end: 20130227

REACTIONS (3)
  - Pruritus [None]
  - Urticaria [None]
  - Contrast media allergy [None]
